FAERS Safety Report 19453189 (Version 1)
Quarter: 2021Q2

REPORT INFORMATION
  Report Type: Other
  Country: GB (occurrence: GB)
  Receive Date: 20210623
  Receipt Date: 20210623
  Transmission Date: 20210717
  Serious: Yes (Hospitalization, Other)
  Sender: FDA-Public Use
  Company Number: GB-STRIDES ARCOLAB LIMITED-2021SP006697

PATIENT
  Age: 29 Year
  Sex: Female

DRUGS (3)
  1. PREDNISOLONE. [Suspect]
     Active Substance: PREDNISOLONE
     Dosage: 10 MILLIGRAM, QD
     Route: 065
  2. SULPHAPYRIDINE [Concomitant]
     Indication: LINEAR IGA DISEASE
     Dosage: UNK
     Route: 065
  3. PREDNISOLONE. [Suspect]
     Active Substance: PREDNISOLONE
     Indication: LINEAR IGA DISEASE
     Dosage: 60 MILLIGRAM DAILY
     Route: 065

REACTIONS (5)
  - Cataract [Unknown]
  - Weight increased [Unknown]
  - Affective disorder [Unknown]
  - Condition aggravated [Unknown]
  - Myopathy [Unknown]
